FAERS Safety Report 25705095 (Version 1)
Quarter: 2025Q3

REPORT INFORMATION
  Report Type: Spontaneous
  Country: US (occurrence: None)
  Receive Date: 20250819
  Receipt Date: 20250819
  Transmission Date: 20251020
  Serious: Yes (Hospitalization)
  Sender: FDA-CTU
  Company Number: None

PATIENT
  Age: 81 Year
  Sex: Female

DRUGS (1)
  1. ARIKAYCE [Suspect]
     Active Substance: AMIKACIN
     Indication: Atypical mycobacterial pneumonia
     Dosage: 590 MG DAILY RESPIRATORY (INHALATION0 ?
     Route: 055
     Dates: start: 20250718, end: 20250807

REACTIONS (4)
  - Acute respiratory failure [None]
  - Respiratory failure [None]
  - Laryngeal injury [None]
  - Vocal cord erythema [None]

NARRATIVE: CASE EVENT DATE: 20250807
